FAERS Safety Report 17077492 (Version 2)
Quarter: 2020Q3

REPORT INFORMATION
  Report Type: Spontaneous
  Country: GR (occurrence: GR)
  Receive Date: 20191126
  Receipt Date: 20200807
  Transmission Date: 20201102
  Serious: Yes (Death, Other)
  Sender: FDA-Public Use
  Company Number: GR-AMGEN-GRCSP2019194863

PATIENT

DRUGS (8)
  1. CARFILZOMIB [Suspect]
     Active Substance: CARFILZOMIB
     Dosage: 56 MILLIGRAM/SQ. METER, SUBSEQUENTLY ON DAYS 1, 8, 15
     Route: 042
  2. HEPARIN [Concomitant]
     Active Substance: HEPARIN SODIUM
     Indication: THROMBOSIS PROPHYLAXIS
     Dosage: UNK
  3. CARFILZOMIB [Suspect]
     Active Substance: CARFILZOMIB
     Indication: PLASMA CELL MYELOMA
     Dosage: 20 MILLIGRAM/SQ. METER, DAY 1 OF CYCLE 1
     Route: 042
  4. LENALIDOMIDE [Concomitant]
     Active Substance: LENALIDOMIDE
     Indication: PLASMA CELL MYELOMA
     Dosage: 25 MILLIGRAM, QD ON DAYS 1?21/  MAINTENANCE 10 MG
  5. VALACYCLOVIR [Concomitant]
     Active Substance: VALACYCLOVIR HYDROCHLORIDE
     Indication: PROPHYLAXIS
     Dosage: UNK
  6. DEXAMETHASONE. [Concomitant]
     Active Substance: DEXAMETHASONE
     Indication: PLASMA CELL MYELOMA
     Dosage: 40 MILLIGRAM, QWK IN A CYCLE OF 28 DAYS
  7. TRIMETHOPRIM SULFAMETHOXAZOLE [Concomitant]
     Active Substance: SULFAMETHOXAZOLE\TRIMETHOPRIM
     Indication: PROPHYLAXIS
     Dosage: UNK
  8. ASPIRIN [ACETYLSALICYLIC ACID] [Concomitant]
     Active Substance: ASPIRIN
     Indication: THROMBOSIS PROPHYLAXIS
     Dosage: UNK

REACTIONS (12)
  - Blood alkaline phosphatase increased [Unknown]
  - Toxicity to various agents [Unknown]
  - Gamma-glutamyltransferase increased [Unknown]
  - Pneumonitis [Unknown]
  - Infection [Unknown]
  - Fatigue [Unknown]
  - Hypocalcaemia [Unknown]
  - Therapy partial responder [Unknown]
  - Neutropenia [Unknown]
  - Thrombotic thrombocytopenic purpura [Fatal]
  - Minimal residual disease [Unknown]
  - Pneumonia staphylococcal [Fatal]
